FAERS Safety Report 5419176-2 (Version None)
Quarter: 2007Q3

REPORT INFORMATION
  Report Type: 
  Country: None (occurrence: None)
  Receive Date: 20070820
  Receipt Date: 20070810
  Transmission Date: 20080115
  Serious: Yes (Death, Hospitalization)
  Sender: FDA-Public Use
  Company Number: US-AMGEN-US238245

PATIENT
  Sex: Female

DRUGS (4)
  1. EPOGEN [Suspect]
     Indication: DIALYSIS
     Route: 042
     Dates: end: 20070521
  2. TOPROL-XL [Concomitant]
     Route: 065
  3. LANTUS [Concomitant]
     Route: 058
  4. TYLENOL [Concomitant]
     Route: 065

REACTIONS (3)
  - HOSPITALISATION [None]
  - SEPSIS [None]
  - THERAPEUTIC RESPONSE INCREASED [None]
